FAERS Safety Report 8433363-0 (Version None)
Quarter: 2012Q2

REPORT INFORMATION
  Report Type: 
  Country: None (occurrence: None)
  Receive Date: 20120613
  Receipt Date: 20120604
  Transmission Date: 20120825
  Serious: Yes (Other)
  Sender: FDA-Public Use
  Company Number: US-BAYER-2012-039945

PATIENT
  Age: 88 Year
  Sex: Male

DRUGS (2)
  1. NEXAVAR [Suspect]
     Indication: HEPATIC NEOPLASM MALIGNANT
     Dosage: 400 MG, BID
     Route: 048
     Dates: start: 20120406, end: 20120507
  2. NEXAVAR [Suspect]
     Dosage: 400 MG
     Route: 048
     Dates: start: 20120101

REACTIONS (6)
  - APHAGIA [None]
  - FATIGUE [None]
  - TREMOR [None]
  - DECREASED APPETITE [None]
  - EAR PAIN [None]
  - ASTHENIA [None]
